FAERS Safety Report 17304861 (Version 11)
Quarter: 2022Q4

REPORT INFORMATION
  Report Type: Spontaneous
  Country: US (occurrence: US)
  Receive Date: 20200123
  Receipt Date: 20221103
  Transmission Date: 20230113
  Serious: Yes (Other)
  Sender: FDA-Public Use
  Company Number: US-PFIZER INC-2019149638

PATIENT
  Age: 68 Year
  Sex: Female

DRUGS (2)
  1. TOVIAZ [Suspect]
     Active Substance: FESOTERODINE FUMARATE
     Indication: Mixed incontinence
     Dosage: 12 MG, DAILY (8MG IN THE AM AND 4MG AT NIGHT)
     Route: 048
  2. TOVIAZ [Suspect]
     Active Substance: FESOTERODINE FUMARATE
     Indication: Hypertonic bladder
     Dosage: 4 MG

REACTIONS (7)
  - Neuropathy peripheral [Unknown]
  - Therapeutic product effect incomplete [Unknown]
  - Prescribed overdose [Unknown]
  - Dysuria [Recovering/Resolving]
  - Renal cyst [Recovering/Resolving]
  - Vaginal infection [Unknown]
  - Mobility decreased [Unknown]
